FAERS Safety Report 15611097 (Version 1)
Quarter: 2018Q4

REPORT INFORMATION
  Report Type: Spontaneous
  Country: US (occurrence: US)
  Receive Date: 20181113
  Receipt Date: 20181113
  Transmission Date: 20190205
  Serious: No
  Sender: FDA-Public Use
  Company Number: US-ROCHE-2170594

PATIENT
  Age: 73 Year
  Sex: Female
  Weight: 67.65 kg

DRUGS (36)
  1. FISH OIL [Concomitant]
     Active Substance: FISH OIL
     Route: 065
     Dates: start: 20170412, end: 20180711
  2. BRILINTA [Concomitant]
     Active Substance: TICAGRELOR
     Route: 065
     Dates: start: 20170531, end: 20180711
  3. FLUTICASONE PROPIONATE. [Concomitant]
     Active Substance: FLUTICASONE PROPIONATE
  4. LEVOTHYROXINE SODIUM. [Concomitant]
     Active Substance: LEVOTHYROXINE SODIUM
     Route: 065
     Dates: start: 20170412, end: 20180711
  5. VENTOLIN HFA [Concomitant]
     Active Substance: ALBUTEROL SULFATE
  6. ANASTROZOLE. [Concomitant]
     Active Substance: ANASTROZOLE
  7. HERCEPTIN [Suspect]
     Active Substance: TRASTUZUMAB
     Indication: BREAST CANCER FEMALE
     Dosage: INFUSE 135MG ONCE A WEEK FOR 51 WEEKS?TRASTUZUMAB 150MG SDV
     Route: 042
     Dates: start: 20170906
  8. DEXAMETHASONE. [Concomitant]
     Active Substance: DEXAMETHASONE
  9. ASA [Concomitant]
     Active Substance: ASPIRIN
     Route: 065
     Dates: start: 20170605, end: 20180711
  10. DESONIDE. [Concomitant]
     Active Substance: DESONIDE
  11. EZETIMIBE. [Concomitant]
     Active Substance: EZETIMIBE
  12. ACETAMINOPHEN. [Concomitant]
     Active Substance: ACETAMINOPHEN
  13. JUBLIA [Concomitant]
     Active Substance: EFINACONAZOLE
  14. LOSARTAN/HCTZ [Concomitant]
     Active Substance: HYDROCHLOROTHIAZIDE\LOSARTAN
     Route: 065
     Dates: start: 20170412, end: 20180711
  15. PACLITAXEL. [Concomitant]
     Active Substance: PACLITAXEL
  16. ATORVASTATIN CALCIUM. [Concomitant]
     Active Substance: ATORVASTATIN CALCIUM
     Route: 065
     Dates: start: 20170605, end: 20180711
  17. BUPROPION HCL [Concomitant]
     Active Substance: BUPROPION HYDROCHLORIDE
  18. ONDANSETRON HCL [Concomitant]
     Active Substance: ONDANSETRON HYDROCHLORIDE
  19. SILVER SULFADIAZINE. [Concomitant]
     Active Substance: SILVER SULFADIAZINE
  20. ZETIA [Concomitant]
     Active Substance: EZETIMIBE
  21. NITROGLYCERIN. [Concomitant]
     Active Substance: NITROGLYCERIN
     Route: 065
     Dates: start: 20170605, end: 20180711
  22. PREDNISONE. [Concomitant]
     Active Substance: PREDNISONE
     Route: 065
     Dates: start: 20180711
  23. LEVOCARNITINE. [Concomitant]
     Active Substance: LEVOCARNITINE
  24. SPIRIVA [Concomitant]
     Active Substance: TIOTROPIUM BROMIDE MONOHYDRATE
     Route: 065
     Dates: start: 20170412, end: 20180711
  25. VASCEPA [Concomitant]
     Active Substance: ICOSAPENT ETHYL
     Route: 065
     Dates: start: 20170605, end: 20180711
  26. PROAIR HFA [Concomitant]
     Active Substance: ALBUTEROL SULFATE
     Route: 065
     Dates: start: 20170605, end: 20180711
  27. CICLOPIROX. [Concomitant]
     Active Substance: CICLOPIROX
     Route: 065
     Dates: start: 20180501, end: 20180711
  28. LIDOCAINE. [Concomitant]
     Active Substance: LIDOCAINE
  29. BABY ASA [Concomitant]
     Active Substance: ASPIRIN
     Route: 065
     Dates: start: 20170412, end: 20180711
  30. ADACEL TDAP [Concomitant]
     Active Substance: TETANUS TOXOID, REDUCED DIPHTHERIA TOXOID AND ACELLULAR PERTUSSIS VACCINE ADSORBED, TDAP
  31. AZITHROMYCIN ANHYDROUS. [Concomitant]
     Active Substance: AZITHROMYCIN ANHYDROUS
  32. BACITRACIN. [Concomitant]
     Active Substance: BACITRACIN
     Route: 065
     Dates: start: 20170531, end: 20180711
  33. GRANISETRON HCL [Concomitant]
  34. PROCHLORPERAZINE. [Concomitant]
     Active Substance: PROCHLORPERAZINE
  35. OMEPRAZOLE. [Concomitant]
     Active Substance: OMEPRAZOLE
     Route: 065
     Dates: start: 20170605, end: 20180711
  36. SYMBICORT [Concomitant]
     Active Substance: BUDESONIDE\FORMOTEROL FUMARATE DIHYDRATE
     Route: 065
     Dates: start: 20170412, end: 20180711

REACTIONS (1)
  - Asthenia [Recovering/Resolving]

NARRATIVE: CASE EVENT DATE: 201808
